FAERS Safety Report 19861003 (Version 2)
Quarter: 2022Q2

REPORT INFORMATION
  Report Type: Spontaneous
  Country: US (occurrence: None)
  Receive Date: 20210921
  Receipt Date: 20220405
  Transmission Date: 20220721
  Serious: Yes (Other)
  Sender: FDA-Public Use
  Company Number: 2021A726452

PATIENT
  Age: 41 Year
  Sex: Male
  Weight: 154.2 kg

DRUGS (13)
  1. NEXIUM [Suspect]
     Active Substance: ESOMEPRAZOLE MAGNESIUM
     Indication: Gastrooesophageal reflux disease
     Dosage: FOR VARIOUS DATES AND YEARS
     Route: 048
  2. NEXIUM [Suspect]
     Active Substance: ESOMEPRAZOLE MAGNESIUM
     Indication: Gastrooesophageal reflux disease
     Route: 048
     Dates: start: 2005, end: 2015
  3. PREVACID [Suspect]
     Active Substance: LANSOPRAZOLE
     Indication: Gastrooesophageal reflux disease
     Dosage: 30.0MG UNKNOWN
     Route: 065
     Dates: start: 2008, end: 2011
  4. PREVACID [Suspect]
     Active Substance: LANSOPRAZOLE
     Indication: Gastrooesophageal reflux disease
     Dosage: GENERIC30.0MG UNKNOWN
     Route: 065
     Dates: start: 2011
  5. NAPROXEN [Concomitant]
     Active Substance: NAPROXEN
     Indication: Analgesic intervention supportive therapy
     Route: 065
     Dates: start: 2008, end: 2009
  6. FUROSEMIDE [Concomitant]
     Active Substance: FUROSEMIDE
     Indication: Diuretic therapy
     Route: 065
     Dates: start: 2008, end: 2010
  7. SULFAMETHOXAZOLE [Concomitant]
     Active Substance: SULFAMETHOXAZOLE
     Indication: Antibiotic therapy
     Route: 065
     Dates: start: 2009, end: 2015
  8. CIPROFLOXACIN [Concomitant]
     Active Substance: CIPROFLOXACIN
     Indication: Antibiotic therapy
     Route: 065
     Dates: start: 2009, end: 2015
  9. TRAMADOL [Concomitant]
     Active Substance: TRAMADOL
     Indication: Pain
     Route: 065
     Dates: start: 2013, end: 2014
  10. CEPHALEXIN [Concomitant]
     Active Substance: CEPHALEXIN
     Indication: Pain
     Route: 065
     Dates: start: 2013, end: 2014
  11. POTASSIUM [Concomitant]
     Active Substance: POTASSIUM
     Indication: Hypokalaemia
     Route: 065
     Dates: start: 2008
  12. PEPTO-BISMOL [Concomitant]
     Active Substance: BISMUTH SUBSALICYLATE
     Route: 065
     Dates: start: 2009, end: 2015
  13. OXYBUTYNIN [Concomitant]
     Active Substance: OXYBUTYNIN

REACTIONS (4)
  - Chronic kidney disease [Not Recovered/Not Resolved]
  - Renal failure [Unknown]
  - Rebound acid hypersecretion [Unknown]
  - Blood urine present [Not Recovered/Not Resolved]

NARRATIVE: CASE EVENT DATE: 20140101
